FAERS Safety Report 9995827 (Version 1)
Quarter: 2014Q1

REPORT INFORMATION
  Report Type: Spontaneous
  Country: US (occurrence: None)
  Receive Date: 20140307
  Receipt Date: 20140307
  Transmission Date: 20141002
  Serious: Yes (Hospitalization)
  Sender: FDA-Public Use
  Company Number: 2013SA129362

PATIENT
  Age: 61 Year
  Sex: Male

DRUGS (8)
  1. AUBAGIO [Suspect]
     Indication: MULTIPLE SCLEROSIS
     Route: 048
     Dates: start: 201308, end: 201402
  2. CELEXA [Concomitant]
  3. AMLODIPINE [Concomitant]
  4. BACLOFEN [Concomitant]
  5. DICLOFENAC [Concomitant]
  6. POTASSIUM [Concomitant]
  7. ZONISAMIDE [Concomitant]
  8. VITAMIN D3 [Concomitant]

REACTIONS (3)
  - Gait disturbance [None]
  - Gait disturbance [None]
  - Spinal disorder [None]
